FAERS Safety Report 13900989 (Version 1)
Quarter: 2017Q3

REPORT INFORMATION
  Report Type: Spontaneous
  Country: US (occurrence: US)
  Receive Date: 20170824
  Receipt Date: 20170824
  Transmission Date: 20171127
  Serious: No
  Sender: FDA-Public Use
  Company Number: GXBR2017US001684

PATIENT
  Sex: Male
  Weight: 79.37 kg

DRUGS (1)
  1. LATANOPROST. [Suspect]
     Active Substance: LATANOPROST
     Indication: GLAUCOMA
     Dosage: 1 DRP, QD
     Route: 047

REACTIONS (2)
  - Eye irritation [Recovered/Resolved]
  - Product contamination [Unknown]
